FAERS Safety Report 6879877-6 (Version None)
Quarter: 2010Q2

REPORT INFORMATION
  Report Type: 
  Country: None (occurrence: None)
  Receive Date: 20100625
  Receipt Date: 20100430
  Transmission Date: 20101027
  Serious: Yes (Other)
  Sender: FDA-Public Use
  Company Number: US-1182181

PATIENT
  Sex: Male

DRUGS (1)
  1. TRIESENCE [Suspect]
     Dosage: INTRAOCULAR
     Route: 031
     Dates: start: 20100421, end: 20100421

REACTIONS (1)
  - ENDOPHTHALMITIS [None]
